FAERS Safety Report 14063020 (Version 1)
Quarter: 2017Q4

REPORT INFORMATION
  Report Type: Spontaneous
  Country: FR (occurrence: FR)
  Receive Date: 20171009
  Receipt Date: 20171009
  Transmission Date: 20180321
  Serious: Yes (Life-Threatening)
  Sender: FDA-Public Use
  Company Number: FR-EMD SERONO-8188488

PATIENT
  Age: 28 Year
  Sex: Female

DRUGS (8)
  1. CLAIRYG [Suspect]
     Active Substance: HUMAN IMMUNOGLOBULIN G
     Indication: LICHEN MYXOEDEMATOSUS
     Dosage: ONE VIAL OF CLAIRYG 10 GRAM PLUS ONE VIAL OF CLAIRYG 20 GRAM, INTRAVENOUS (INFUSION)
     Route: 042
     Dates: start: 20170822
  2. PLAQUENIL                          /00072602/ [Concomitant]
     Active Substance: HYDROXYCHLOROQUINE DIPHOSPHATE
     Indication: LICHEN MYXOEDEMATOSUS
  3. ANTIGONE [Suspect]
     Active Substance: DESOGESTREL
     Indication: CONTRACEPTION
     Route: 048
     Dates: end: 201707
  4. AERIUS                             /01009701/ [Concomitant]
     Active Substance: EBASTINE
     Indication: RHINITIS ALLERGIC
     Route: 048
  5. ORGALUTRAN [Suspect]
     Active Substance: GANIRELIX ACETATE
     Indication: OVULATION INDUCTION
     Dosage: 0.25 MG/0.5 ML
     Route: 058
     Dates: start: 20170812, end: 20170814
  6. DECAPEPTYL                         /00486501/ [Suspect]
     Active Substance: GONADORELIN
     Indication: OVULATION INDUCTION
     Dosage: POWDER AND SOLVENT FOR SOLUTION FOR INJECTION
     Route: 058
     Dates: start: 20170812, end: 20170814
  7. GONAL-F [Suspect]
     Active Substance: FOLLITROPIN
     Indication: OVULATION INDUCTION
     Route: 058
     Dates: start: 20170807, end: 20170815
  8. NERISONE [Concomitant]
     Active Substance: DIFLUCORTOLONE VALERATE
     Indication: LICHEN MYXOEDEMATOSUS

REACTIONS (1)
  - Intracardiac thrombus [Recovered/Resolved]

NARRATIVE: CASE EVENT DATE: 20170823
